FAERS Safety Report 23451321 (Version 2)
Quarter: 2024Q1

REPORT INFORMATION
  Report Type: Spontaneous
  Country: US (occurrence: US)
  Receive Date: 20240129
  Receipt Date: 20240221
  Transmission Date: 20240410
  Serious: No
  Sender: FDA-Public Use
  Company Number: US-BAYER-2024A012978

PATIENT
  Age: 61 Year
  Sex: Male

DRUGS (1)
  1. JIVI [Suspect]
     Active Substance: DAMOCTOCOG ALFA PEGOL
     Dosage: 3000 IU

REACTIONS (3)
  - Joint swelling [None]
  - Arthralgia [None]
  - Osteoarthritis [None]

NARRATIVE: CASE EVENT DATE: 20240122
